FAERS Safety Report 10745735 (Version 1)
Quarter: 2015Q1

REPORT INFORMATION
  Report Type: Spontaneous
  Country: US (occurrence: None)
  Receive Date: 20150114
  Receipt Date: 20150114
  Transmission Date: 20150721
  Serious: Yes (Hospitalization)
  Sender: FDA-Public Use
  Company Number: 2374606

PATIENT
  Age: 65 Year
  Sex: Female
  Weight: 77 kg

DRUGS (13)
  1. FUROSEMIDE. [Concomitant]
     Active Substance: FUROSEMIDE
  2. ACETAMINOPHEN. [Concomitant]
     Active Substance: ACETAMINOPHEN
  3. PLACEBO [Concomitant]
     Active Substance: UNSPECIFIED INGREDIENT
  4. MULTIPLE VITAMINS [Concomitant]
     Active Substance: VITAMINS
  5. PEGFILGRASTIM [Concomitant]
     Active Substance: PEGFILGRASTIM
  6. EMLA [Concomitant]
     Active Substance: LIDOCAINE\PRILOCAINE
  7. DEXAMETHASONE. [Concomitant]
     Active Substance: DEXAMETHASONE
  8. BENADRYL [Concomitant]
     Active Substance: DIPHENHYDRAMINE HYDROCHLORIDE
  9. GEMCITABINE [Suspect]
     Active Substance: GEMCITABINE\GEMCITABINE HYDROCHLORIDE
     Indication: SOFT TISSUE SARCOMA
     Dosage: CYCLICAL
     Route: 041
     Dates: start: 20140207
  10. DOCETAXEL. [Concomitant]
     Active Substance: DOCETAXEL
  11. ONDANSETRON [Concomitant]
     Active Substance: ONDANSETRON
  12. GLICLAZIDE [Concomitant]
     Active Substance: GLICLAZIDE
  13. CLINDAMYCIN [Concomitant]
     Active Substance: CLINDAMYCIN\CLINDAMYCIN PHOSPHATE

REACTIONS (1)
  - Cellulitis [None]

NARRATIVE: CASE EVENT DATE: 20140509
